FAERS Safety Report 7758372-6 (Version None)
Quarter: 2011Q3

REPORT INFORMATION
  Report Type: 
  Country: None (occurrence: None)
  Receive Date: 20110919
  Receipt Date: 20110907
  Transmission Date: 20111222
  Serious: Yes (Hospitalization)
  Sender: FDA-Public Use
  Company Number: JP-GENZYME-THYM-1002149

PATIENT
  Sex: Male
  Weight: 16 kg

DRUGS (54)
  1. SODIUM PICOSULFATE [Concomitant]
     Indication: CONSTIPATION
     Dosage: 10 ML, UNK
     Route: 065
     Dates: start: 20090628, end: 20090628
  2. HEPARIN [Concomitant]
     Indication: PRODUCT USED FOR UNKNOWN INDICATION
     Dosage: UNK
     Route: 065
     Dates: start: 20090701, end: 20090701
  3. TACROLIMUS [Concomitant]
     Dosage: UNK
     Route: 065
     Dates: start: 20090729, end: 20090729
  4. MICAFUNGIN SODIUM [Concomitant]
     Indication: PRODUCT USED FOR UNKNOWN INDICATION
     Dosage: UNK
     Route: 065
     Dates: start: 20090626, end: 20090721
  5. FLUDARABINE PHOSPHATE [Concomitant]
     Indication: PRODUCT USED FOR UNKNOWN INDICATION
     Dosage: UNK
     Route: 065
     Dates: start: 20090622, end: 20090627
  6. FLOMOXEF SODIUM [Concomitant]
     Indication: PRODUCT USED FOR UNKNOWN INDICATION
     Dosage: UNK
     Route: 065
     Dates: start: 20090625, end: 20090625
  7. THYMOGLOBULIN [Suspect]
     Indication: BONE MARROW CONDITIONING REGIMEN
     Dosage: 40 MG, QD
     Route: 042
     Dates: start: 20090622, end: 20090623
  8. URSODIOL [Concomitant]
     Indication: PROPHYLAXIS
     Dosage: 75 MG, BID
     Route: 065
     Dates: start: 20090622, end: 20090625
  9. AZULENE [Concomitant]
     Dosage: UNK
     Route: 065
     Dates: start: 20090705, end: 20090705
  10. ITRACONAZOLE [Concomitant]
     Indication: PRODUCT USED FOR UNKNOWN INDICATION
     Dosage: 8 ML, QD
     Route: 065
     Dates: start: 20090721, end: 20090721
  11. TACROLIMUS [Concomitant]
     Dosage: 1.4 MG, BID
     Route: 065
     Dates: start: 20090727, end: 20090727
  12. TACROLIMUS [Concomitant]
     Dosage: 0.2 MG, BID
     Route: 065
     Dates: start: 20090729, end: 20090729
  13. HEPARIN SODIUM [Concomitant]
     Indication: PRODUCT USED FOR UNKNOWN INDICATION
     Dosage: UNK
     Route: 065
     Dates: start: 20090622, end: 20090622
  14. HEPARIN SODIUM [Concomitant]
     Dosage: UNK
     Route: 065
     Dates: start: 20090727, end: 20090727
  15. CYCLOPHOSPHAMIDE [Concomitant]
     Indication: PRODUCT USED FOR UNKNOWN INDICATION
     Dosage: UNK
     Route: 065
     Dates: start: 20090624, end: 20090627
  16. FLOMOXEF SODIUM [Concomitant]
     Dosage: UNK
     Route: 065
     Dates: start: 20090626, end: 20090716
  17. MIDAZOLAM HCL [Concomitant]
     Indication: PRODUCT USED FOR UNKNOWN INDICATION
     Dosage: UNK
     Route: 065
     Dates: start: 20090629, end: 20090630
  18. METHOTREXATE [Concomitant]
     Dosage: UNK
     Route: 065
     Dates: start: 20090703, end: 20090703
  19. METHOTREXATE [Concomitant]
     Dosage: UNK
     Route: 065
     Dates: start: 20090706, end: 20090706
  20. LENOGRASTIM [Concomitant]
     Indication: COLONY STIMULATING FACTOR THERAPY
     Dosage: UNK
     Route: 065
     Dates: start: 20090705, end: 20090725
  21. ITRACONAZOLE [Concomitant]
     Dosage: 16 ML, QD
     Route: 065
     Dates: start: 20090722, end: 20090728
  22. METHYLPREDNISOLONE SODIUM SUCCINATE [Concomitant]
     Indication: PREMEDICATION
     Dosage: 15 MG, UNK
     Route: 065
     Dates: start: 20090622, end: 20090624
  23. FLOMOXEF SODIUM [Concomitant]
     Dosage: UNK
     Route: 065
     Dates: start: 20090717, end: 20090717
  24. RAMOSETRON HYDROCHLORIDE [Concomitant]
     Dosage: UNK
     Route: 065
     Dates: start: 20090629, end: 20090629
  25. THIOPENTAL SODIUM [Concomitant]
     Indication: PRODUCT USED FOR UNKNOWN INDICATION
     Dosage: UNK
     Route: 065
     Dates: start: 20090629, end: 20090630
  26. METHOTREXATE [Concomitant]
     Indication: PRODUCT USED FOR UNKNOWN INDICATION
     Dosage: UNK
     Route: 065
     Dates: start: 20090701, end: 20090701
  27. ACYCLOVIR [Concomitant]
     Indication: ANTIVIRAL PROPHYLAXIS
     Dosage: UNK
     Route: 065
     Dates: start: 20090701, end: 20090726
  28. MIXED AMINO ACID CARBOHYDRATE ELECTROLYTE VITAMIN COMBINED DRUG [Concomitant]
     Indication: PRODUCT USED FOR UNKNOWN INDICATION
     Dosage: UNK
     Route: 065
     Dates: start: 20090702, end: 20090717
  29. CANDESARTAN CILEXETIL [Concomitant]
     Indication: PRODUCT USED FOR UNKNOWN INDICATION
     Dosage: UNK
     Route: 065
     Dates: start: 20090629, end: 20090731
  30. HEPARIN SODIUM [Concomitant]
     Indication: PROPHYLAXIS
     Dosage: UNK
     Route: 065
     Dates: start: 20090621, end: 20090621
  31. RAMOSETRON HYDROCHLORIDE [Concomitant]
     Indication: PRODUCT USED FOR UNKNOWN INDICATION
     Dosage: UNK
     Route: 065
     Dates: start: 20090626, end: 20090627
  32. MELPHALAN HYDROCHLORIDE [Concomitant]
     Indication: PRODUCT USED FOR UNKNOWN INDICATION
     Dosage: UNK
     Route: 065
     Dates: start: 20090628, end: 20090628
  33. HAPTOGLOBINS [Concomitant]
     Indication: PRODUCT USED FOR UNKNOWN INDICATION
     Dosage: UNK
     Route: 065
     Dates: start: 20090630, end: 20090630
  34. URSODIOL [Concomitant]
     Dosage: 150 MG, BID
     Route: 065
     Dates: start: 20090626, end: 20090630
  35. URSODIOL [Concomitant]
     Dosage: 75 MG, BID
     Route: 065
     Dates: start: 20090701, end: 20090728
  36. ITRACONAZOLE [Concomitant]
     Dosage: 8 ML, QD
     Route: 065
     Dates: start: 20090729, end: 20090731
  37. SULFAMETHOPRIM [Concomitant]
     Indication: PRODUCT USED FOR UNKNOWN INDICATION
     Dosage: 0.75 G, BID
     Route: 065
     Dates: start: 20090729, end: 20090730
  38. HEPARIN SODIUM [Concomitant]
     Dosage: UNK
     Route: 065
     Dates: start: 20090724, end: 20090724
  39. WHITE PETROLEUM [Concomitant]
     Indication: PRODUCT USED FOR UNKNOWN INDICATION
     Dosage: UNK
     Route: 065
     Dates: start: 20090628, end: 20090628
  40. TACROLIMUS [Concomitant]
     Indication: PROPHYLAXIS AGAINST GRAFT VERSUS HOST DISEASE
     Dosage: 0.4 MG, BID
     Route: 065
     Dates: start: 20090724, end: 20090726
  41. TACROLIMUS [Concomitant]
     Dosage: UNK
     Route: 065
     Dates: start: 20090701, end: 20090723
  42. HEPARIN SODIUM [Concomitant]
     Dosage: UNK
     Route: 065
     Dates: start: 20090718, end: 20090721
  43. GRANISETRON HYDROCHLORIDE [Concomitant]
     Indication: PRODUCT USED FOR UNKNOWN INDICATION
     Dosage: UNK
     Route: 065
     Dates: start: 20090622, end: 20090630
  44. CHLORPHENIRAMINE MALEATE [Concomitant]
     Indication: PREMEDICATION
     Dosage: 2.5 MG, QD
     Route: 065
     Dates: start: 20090622, end: 20090624
  45. CHLORPHENIRAMINE MALEATE [Concomitant]
     Indication: PRODUCT USED FOR UNKNOWN INDICATION
     Dosage: UNK MG, QD
     Route: 065
     Dates: start: 20090709, end: 20090709
  46. CYCLOPHOSPHAMIDE [Concomitant]
     Dosage: UNK
     Route: 065
     Dates: start: 20090624, end: 20090627
  47. METHOTREXATE [Concomitant]
     Dosage: UNK
     Route: 065
     Dates: start: 20090711, end: 20090711
  48. AZULENE [Concomitant]
     Indication: PRODUCT USED FOR UNKNOWN INDICATION
     Dosage: UNK
     Route: 065
     Dates: start: 20090703, end: 20090703
  49. TACROLIMUS [Concomitant]
     Dosage: 0.3 MG, BID
     Route: 065
     Dates: start: 20090728, end: 20090728
  50. HEPARIN SODIUM [Concomitant]
     Dosage: UNK
     Route: 065
     Dates: start: 20090731, end: 20090731
  51. MESNA [Concomitant]
     Dosage: UNK
     Route: 065
     Dates: start: 20090624, end: 20090627
  52. ACYCLOVIR [Concomitant]
     Dosage: UNK
     Route: 065
     Dates: start: 20090727, end: 20090727
  53. MANGANESE CHLORIDE ZINC SULFATE COMBINED DRUG [Concomitant]
     Indication: PRODUCT USED FOR UNKNOWN INDICATION
     Dosage: UNK
     Route: 065
     Dates: start: 20090702, end: 20090717
  54. HYDROCORTISONE SODIUM SUCCINATE [Concomitant]
     Indication: PRODUCT USED FOR UNKNOWN INDICATION
     Dosage: UNK
     Route: 065
     Dates: start: 20090709, end: 20090709

REACTIONS (3)
  - IDIOPATHIC THROMBOCYTOPENIC PURPURA [None]
  - INFECTION [None]
  - HAEMOLYTIC ANAEMIA [None]
